FAERS Safety Report 19734017 (Version 2)
Quarter: 2021Q4

REPORT INFORMATION
  Report Type: Spontaneous
  Country: DE (occurrence: DE)
  Receive Date: 20210824
  Receipt Date: 20211217
  Transmission Date: 20220303
  Serious: Yes (Other)
  Sender: FDA-Public Use
  Company Number: DE-AUROBINDO-AUR-APL-2016-05614

PATIENT
  Age: 38 Year

DRUGS (3)
  1. BUPIVACAINE [Suspect]
     Active Substance: BUPIVACAINE
     Indication: Epidural analgesia
     Dosage: 2 MILLILITER
     Route: 008
  2. SUFENTANIL [Suspect]
     Active Substance: SUFENTANIL
     Indication: Epidural analgesia
     Dosage: 20 ?G SUFENTANIL (=0.4 ?G/ML)
     Route: 005
  3. ROPIVACAINE [Suspect]
     Active Substance: ROPIVACAINE
     Indication: Epidural analgesia
     Dosage: 10 MILLILITER
     Route: 065

REACTIONS (4)
  - Horner^s syndrome [Recovered/Resolved]
  - Cranial nerve palsies multiple [Recovered/Resolved]
  - Hemiparesis [Recovered/Resolved]
  - Lacrimation increased [Recovered/Resolved]
